FAERS Safety Report 18577558 (Version 3)
Quarter: 2020Q4

REPORT INFORMATION
  Report Type: Report from Study
  Country: None (occurrence: CA)
  Receive Date: 20201204
  Receipt Date: 20201231
  Transmission Date: 20210114
  Serious: Yes (Hospitalization)
  Sender: FDA-Public Use
  Company Number: CA-ABBVIE-20K-028-3674455-00

PATIENT
  Sex: Female

DRUGS (1)
  1. HUMIRA [Suspect]
     Active Substance: ADALIMUMAB
     Indication: CROHN^S DISEASE
     Route: 058
     Dates: start: 20100405

REACTIONS (8)
  - Gastrointestinal oedema [Recovering/Resolving]
  - Throat irritation [Unknown]
  - Night sweats [Unknown]
  - Abdominal distension [Not Recovered/Not Resolved]
  - Swelling face [Not Recovered/Not Resolved]
  - Fatigue [Unknown]
  - Gastrointestinal infection [Recovering/Resolving]
  - Intestinal obstruction [Recovering/Resolving]

NARRATIVE: CASE EVENT DATE: 2020
